FAERS Safety Report 5909615-2 (Version None)
Quarter: 2008Q4

REPORT INFORMATION
  Report Type: 
  Country: None (occurrence: None)
  Receive Date: 20081001
  Receipt Date: 20080926
  Transmission Date: 20090506
  Serious: Yes (Other)
  Sender: FDA-Public Use
  Company Number: THQ2008A01925

PATIENT
  Age: 57 Year
  Sex: Female

DRUGS (5)
  1. PIOGLITAZONE HCL [Suspect]
     Indication: DIABETES MELLITUS
     Dosage: 15 MG (15 MG, 1 IN 1 D) PER ORAL
     Route: 048
     Dates: start: 20080101, end: 20080101
  2. PIOGLITAZONE HCL [Suspect]
     Indication: DIABETES MELLITUS
     Dosage: 15 MG (15 MG, 1 IN 1 D) PER ORAL
     Route: 048
     Dates: start: 20080801, end: 20080915
  3. GLIMEPIRIDE [Concomitant]
  4. ROSIGLITAZONE MALEATE AND METFORMIN HCL [Concomitant]
  5. METFORMIN HYDROCHLORIDE [Concomitant]

REACTIONS (2)
  - EPISCLERITIS [None]
  - EYE HAEMORRHAGE [None]
